FAERS Safety Report 13431088 (Version 1)
Quarter: 2017Q2

REPORT INFORMATION
  Report Type: Spontaneous
  Country: US (occurrence: US)
  Receive Date: 20170412
  Receipt Date: 20170412
  Transmission Date: 20170830
  Serious: Yes (Life-Threatening)
  Sender: FDA-Public Use
  Company Number: US-CELGENEUS-USA-20170311012

PATIENT
  Age: 75 Year
  Sex: Male
  Weight: 63.56 kg

DRUGS (1)
  1. REVLIMID [Suspect]
     Active Substance: LENALIDOMIDE
     Indication: PLASMA CELL MYELOMA
     Dosage: 15 MILLIGRAM
     Route: 048
     Dates: start: 201609

REACTIONS (2)
  - Coronary artery occlusion [Recovered/Resolved with Sequelae]
  - Weight increased [Recovered/Resolved with Sequelae]

NARRATIVE: CASE EVENT DATE: 201703
